FAERS Safety Report 10412753 (Version 1)
Quarter: 2014Q2

REPORT INFORMATION
  Report Type: Spontaneous
  Country: US (occurrence: None)
  Receive Date: 20140604
  Receipt Date: 20140604
  Transmission Date: 20141212
  Serious: No
  Sender: FDA-Public Use
  Company Number: 163-POMAL-14050167

PATIENT
  Age: 71 Year
  Sex: Female

DRUGS (9)
  1. POMALYST [Suspect]
     Indication: PLASMA CELL MYELOMA
     Dosage: TEMPORARILY INTERRUPTED
     Route: 048
     Dates: start: 20131011
  2. ATOVAQUONE-PROGUANIL HCL (MALARONE) [Concomitant]
  3. KYPROLIS (CARFILZOMIB) [Concomitant]
  4. BIOTIN 5000 (BIOTIN) [Concomitant]
  5. ONDANSETRON HCL [Concomitant]
  6. OMEPRAZOLE [Concomitant]
  7. LOPERAMIDE A-D (LOPERAMIDE) [Concomitant]
  8. BROMFENAC SODIUM [Concomitant]
  9. METOPROLOL SUCCINATE ER [Concomitant]

REACTIONS (2)
  - Neutropenia [None]
  - Colitis [None]
